FAERS Safety Report 11399240 (Version 2)
Quarter: 2015Q3

REPORT INFORMATION
  Report Type: Spontaneous
  Country: US (occurrence: US)
  Receive Date: 20150820
  Receipt Date: 20150828
  Transmission Date: 20151125
  Serious: Yes (Hospitalization)
  Sender: FDA-Public Use
  Company Number: US-TEVA-587175USA

PATIENT
  Age: 68 Year
  Sex: Male
  Weight: 104.42 kg

DRUGS (1)
  1. VENLAFAXINE [Suspect]
     Active Substance: VENLAFAXINE HYDROCHLORIDE
     Indication: ANXIETY
     Dosage: 75 MILLIGRAM DAILY;
     Route: 048
     Dates: start: 2014, end: 20150808

REACTIONS (14)
  - Fall [Unknown]
  - Fatigue [Not Recovered/Not Resolved]
  - Depression [Unknown]
  - Irritability [Not Recovered/Not Resolved]
  - Head injury [Unknown]
  - Blood pressure increased [Recovered/Resolved]
  - Blood pressure decreased [Recovered/Resolved]
  - Rhinorrhoea [Unknown]
  - Myalgia [Not Recovered/Not Resolved]
  - Dizziness [Recovered/Resolved]
  - Pain [Not Recovered/Not Resolved]
  - Dyspnoea [Recovered/Resolved]
  - Blood pressure fluctuation [Recovered/Resolved]
  - Personality change [Not Recovered/Not Resolved]

NARRATIVE: CASE EVENT DATE: 2014
